FAERS Safety Report 15310017 (Version 1)
Quarter: 2018Q3

REPORT INFORMATION
  Report Type: Spontaneous
  Country: US (occurrence: US)
  Receive Date: 20180813
  Receipt Date: 20180813
  Transmission Date: 20181010
  Serious: Yes (Other)
  Sender: FDA-Public Use
  Company Number: None

PATIENT
  Age: 63 Year
  Sex: Female
  Weight: 81.45 kg

DRUGS (14)
  1. LAMOTRIGINE. [Concomitant]
     Active Substance: LAMOTRIGINE
  2. NAPROXEN. [Concomitant]
     Active Substance: NAPROXEN
  3. TIZANIDINE. [Concomitant]
     Active Substance: TIZANIDINE
  4. MULTI?VITAMIN [Concomitant]
     Active Substance: .ALPHA.-TOCOPHEROL ACETATE, DL-\ASCORBIC ACID\CYANOCOBALAMIN\FLUORIDE ION\FOLIC ACID\NIACIN\PYRIDOXINE\RIBOFLAVIN\THIAMINE\VITAMIN A\VITAMIN D
  5. VITAMIN B12 [Concomitant]
     Active Substance: CYANOCOBALAMIN
  6. CELEXA [Suspect]
     Active Substance: CITALOPRAM HYDROBROMIDE
     Indication: DEPRESSION
     Dosage: ?          QUANTITY:1 TABLET(S);?
     Route: 048
     Dates: start: 20171220, end: 20180205
  7. LEXAPRO [Suspect]
     Active Substance: ESCITALOPRAM OXALATE
     Indication: DEPRESSION
     Dosage: ?          QUANTITY:2 TABLET(S);?
     Route: 048
     Dates: start: 20151101, end: 20171220
  8. OMEPRAZOLE. [Concomitant]
     Active Substance: OMEPRAZOLE
  9. MAGNESIUM [Concomitant]
     Active Substance: MAGNESIUM
  10. CALCIUM [Concomitant]
     Active Substance: CALCIUM
  11. BUPROPION XL [Concomitant]
     Active Substance: BUPROPION
  12. ROSUVASTATIN. [Concomitant]
     Active Substance: ROSUVASTATIN
  13. HYDROXYZINED [Concomitant]
  14. VITAMIN D3 [Concomitant]
     Active Substance: CHOLECALCIFEROL

REACTIONS (12)
  - Decreased appetite [None]
  - Dysgeusia [None]
  - Mood swings [None]
  - Suicide attempt [None]
  - Anxiety [None]
  - Thinking abnormal [None]
  - Insomnia [None]
  - Restlessness [None]
  - Hallucination [None]
  - Abdominal pain upper [None]
  - Influenza like illness [None]
  - Paranoia [None]

NARRATIVE: CASE EVENT DATE: 20180201
